FAERS Safety Report 5376162-9 (Version None)
Quarter: 2007Q2

REPORT INFORMATION
  Report Type: 
  Country: None (occurrence: None)
  Receive Date: 20070628
  Receipt Date: 20070628
  Transmission Date: 20071010
  Serious: Yes (Disabling)
  Sender: FDA-Public Use
  Company Number: None

PATIENT
  Age: 79 Year
  Sex: Male
  Weight: 66.6788 kg

DRUGS (1)
  1. AVODART [Suspect]
     Indication: BENIGN PROSTATIC HYPERPLASIA
     Dosage: 1 CAPSULE 1 X DAY
     Dates: start: 20070103, end: 20070324

REACTIONS (5)
  - BREAST ENLARGEMENT [None]
  - BREAST TENDERNESS [None]
  - PENILE OEDEMA [None]
  - SCROTAL OEDEMA [None]
  - TESTICULAR OEDEMA [None]
